FAERS Safety Report 12594888 (Version 1)
Quarter: 2016Q3

REPORT INFORMATION
  Report Type: Spontaneous
  Country: US (occurrence: US)
  Receive Date: 20160726
  Receipt Date: 20160726
  Transmission Date: 20161109
  Serious: No
  Sender: FDA-Public Use
  Company Number: US-UNITED THERAPEUTICS-UNT-2016-004548

PATIENT
  Sex: Female
  Weight: 96.6 kg

DRUGS (3)
  1. TYVASO [Suspect]
     Active Substance: TREPROSTINIL
     Dosage: UNK
  2. TYVASO [Suspect]
     Active Substance: TREPROSTINIL
     Indication: PULMONARY ARTERIAL HYPERTENSION
     Dosage: 18-72 MICROGRAMS, QID
     Dates: start: 20150227
  3. TYVASO [Suspect]
     Active Substance: TREPROSTINIL
     Dosage: UNK

REACTIONS (8)
  - Upper-airway cough syndrome [Not Recovered/Not Resolved]
  - Palpitations [Unknown]
  - Drug effect decreased [Unknown]
  - Therapy non-responder [Unknown]
  - Blood glucose decreased [Unknown]
  - Oedema peripheral [Unknown]
  - Product use issue [Unknown]
  - Secretion discharge [Unknown]

NARRATIVE: CASE EVENT DATE: 2015
